FAERS Safety Report 23192932 (Version 1)
Quarter: 2023Q4

REPORT INFORMATION
  Report Type: Spontaneous
  Country: US (occurrence: None)
  Receive Date: 20231116
  Receipt Date: 20231116
  Transmission Date: 20240109
  Serious: No
  Sender: FDA-Public Use
  Company Number: None

PATIENT
  Sex: 0

DRUGS (1)
  1. COLACE [Suspect]
     Active Substance: DOCUSATE SODIUM

REACTIONS (3)
  - Drug ineffective [None]
  - Pain [None]
  - Constipation [None]
